FAERS Safety Report 10525198 (Version 2)
Quarter: 2014Q4

REPORT INFORMATION
  Report Type: Spontaneous
  Country: IN (occurrence: None)
  Receive Date: 20141015
  Receipt Date: 20141028
  Transmission Date: 20150528
  Serious: Yes (Death, Hospitalization)
  Sender: FDA-Public Use
  Company Number: IN-2014-4061

PATIENT
  Age: 53 Year
  Sex: Female

DRUGS (1)
  1. VINORELBINE [Suspect]
     Active Substance: VINORELBINE\VINORELBINE TARTRATE
     Indication: BREAST CANCER
     Dosage: TWO WEEKLY REGIMEN
     Dates: start: 201405

REACTIONS (2)
  - Lower respiratory tract infection [None]
  - Death [None]

NARRATIVE: CASE EVENT DATE: 2014
